FAERS Safety Report 5576051-0 (Version None)
Quarter: 2007Q4

REPORT INFORMATION
  Report Type: 
  Country: None (occurrence: None)
  Receive Date: 20071228
  Receipt Date: 20071219
  Transmission Date: 20080405
  Serious: Yes (Other)
  Sender: FDA-Public Use
  Company Number: CA-JNJFOC-20071205185

PATIENT
  Age: 46 Year

DRUGS (2)
  1. REMICADE [Suspect]
     Dosage: 6TH INFUSION INCREASED TO 5 OR 10 MG
     Route: 042
  2. REMICADE [Suspect]
     Indication: RHEUMATOID ARTHRITIS
     Dosage: 5 INFUSIONS
     Route: 042

REACTIONS (2)
  - COLITIS [None]
  - CONSTIPATION [None]
